FAERS Safety Report 6550106-6 (Version None)
Quarter: 2010Q1

REPORT INFORMATION
  Report Type: 
  Country: None (occurrence: None)
  Receive Date: 20100125
  Receipt Date: 20100118
  Transmission Date: 20100710
  Serious: Yes (Hospitalization)
  Sender: FDA-Public Use
  Company Number: FR-PFIZER INC-2010006277

PATIENT
  Age: 81 Year
  Sex: Female

DRUGS (11)
  1. CELEBREX [Suspect]
     Dosage: 1 DF, ALTERNATE DAY
     Dates: end: 20091019
  2. ZOCOR [Suspect]
     Dosage: 20 MG, 1X/DAY
     Route: 048
     Dates: end: 20091019
  3. TARDYFERON [Suspect]
     Dosage: 1 DF, 1X/DAY
     Route: 048
     Dates: start: 20091010, end: 20091019
  4. HYZAAR [Concomitant]
     Dosage: 1 DF, 1X/DAY
     Route: 048
  5. VASTAREL [Concomitant]
     Dosage: 20 MG, 3X/DAY
     Route: 048
  6. LEVOTHYROXINE SODIUM [Concomitant]
     Dosage: 1 DF, 1X/DAY
     Route: 048
  7. OROCAL [Concomitant]
     Dosage: 1 DF, 1X/DAY
     Route: 048
  8. FOSAVANCE [Concomitant]
     Dosage: 1 DF, WEEKLY
     Route: 048
  9. LEXOMIL [Concomitant]
     Dosage: 3 MG, 1X/DAY
     Route: 048
  10. IXPRIM [Concomitant]
  11. KETOPROFEN [Concomitant]
     Indication: ARTHRALGIA

REACTIONS (3)
  - HYPERAMYLASAEMIA [None]
  - HYPERLIPASAEMIA [None]
  - TRANSAMINASES INCREASED [None]
